FAERS Safety Report 18985037 (Version 1)
Quarter: 2021Q1

REPORT INFORMATION
  Report Type: Spontaneous
  Country: CH (occurrence: CH)
  Receive Date: 20210309
  Receipt Date: 20210309
  Transmission Date: 20210420
  Serious: Yes (Hospitalization)
  Sender: FDA-Public Use
  Company Number: CH-LEADINGPHARMA-CH-2021LEALIT00083

PATIENT
  Age: 35 Year
  Sex: Female

DRUGS (1)
  1. LIDOCAINE. [Suspect]
     Active Substance: LIDOCAINE
     Indication: VENTRICULAR TACHYCARDIA
     Route: 042

REACTIONS (2)
  - Therapeutic response decreased [Unknown]
  - Product use in unapproved indication [Unknown]
